FAERS Safety Report 10994050 (Version 1)
Quarter: 2015Q2

REPORT INFORMATION
  Report Type: Other
  Country: IT (occurrence: IT)
  Receive Date: 20150407
  Receipt Date: 20150407
  Transmission Date: 20150821
  Serious: Yes (Hospitalization, Other)
  Sender: FDA-Public Use
  Company Number: IT-APOTEX-2015AP007745

PATIENT
  Age: 43 Year
  Sex: Male

DRUGS (4)
  1. ZOLPIDEM [Suspect]
     Active Substance: ZOLPIDEM\ZOLPIDEM TARTRATE
     Indication: ANXIETY
     Dosage: 130 MG, DAILY
     Route: 048
     Dates: end: 20150128
  2. XANAX [Suspect]
     Active Substance: ALPRAZOLAM
     Dosage: UNK
     Route: 065
     Dates: start: 20100129
  3. ZOLPIDEM [Suspect]
     Active Substance: ZOLPIDEM\ZOLPIDEM TARTRATE
     Dosage: UNK
     Route: 065
     Dates: start: 20100129
  4. XANAX [Suspect]
     Active Substance: ALPRAZOLAM
     Indication: ANXIETY
     Dosage: 3.25 MG, DAILY
     Route: 048
     Dates: end: 20150129

REACTIONS (1)
  - Drug dependence [Recovering/Resolving]

NARRATIVE: CASE EVENT DATE: 20150129
